FAERS Safety Report 5568628-3 (Version None)
Quarter: 2007Q4

REPORT INFORMATION
  Report Type: 
  Country: None (occurrence: None)
  Receive Date: 20071220
  Receipt Date: 20070831
  Transmission Date: 20080405
  Serious: Yes (Other)
  Sender: FDA-Public Use
  Company Number: JP-ASTRAZENECA-2007AP07091

PATIENT
  Age: 65 Year
  Sex: Male

DRUGS (1)
  1. MEROPEN [Suspect]
     Route: 042
     Dates: start: 20070730

REACTIONS (5)
  - CHOLESTASIS [None]
  - DRUG ERUPTION [None]
  - EOSINOPHILIA [None]
  - PYREXIA [None]
  - RENAL IMPAIRMENT [None]
